FAERS Safety Report 14266460 (Version 1)
Quarter: 2017Q4

REPORT INFORMATION
  Report Type: Spontaneous
  Country: US (occurrence: US)
  Receive Date: 20171208
  Receipt Date: 20171208
  Transmission Date: 20180321
  Serious: No
  Sender: FDA-Public Use
  Company Number: None

PATIENT
  Age: 30 Year
  Sex: Female
  Weight: 58.5 kg

DRUGS (1)
  1. ADDERALL [Suspect]
     Active Substance: AMPHETAMINE ASPARTATE\AMPHETAMINE SULFATE\DEXTROAMPHETAMINE SACCHARATE\DEXTROAMPHETAMINE SULFATE
     Indication: ATTENTION DEFICIT/HYPERACTIVITY DISORDER
     Dosage: ?          QUANTITY:2 TABLET(S);?
     Route: 048
     Dates: start: 20171023, end: 20171201

REACTIONS (8)
  - Fatigue [None]
  - Headache [None]
  - Influenza like illness [None]
  - Constipation [None]
  - Abdominal distension [None]
  - Jaw disorder [None]
  - Dyspepsia [None]
  - Flatulence [None]

NARRATIVE: CASE EVENT DATE: 20171023
